FAERS Safety Report 17317242 (Version 2)
Quarter: 2021Q1

REPORT INFORMATION
  Report Type: Spontaneous
  Country: US (occurrence: US)
  Receive Date: 20200124
  Receipt Date: 20210304
  Transmission Date: 20210419
  Serious: No
  Sender: FDA-Public Use
  Company Number: US-PFIZER INC-2020030067

PATIENT
  Age: 44 Year
  Sex: Female

DRUGS (1)
  1. AROMASIN [Suspect]
     Active Substance: EXEMESTANE
     Indication: BREAST CANCER FEMALE
     Dosage: 25 MG

REACTIONS (5)
  - Incorrect product administration duration [Unknown]
  - Dysstasia [Unknown]
  - Pain in extremity [Unknown]
  - Back pain [Unknown]
  - Bone loss [Unknown]
